FAERS Safety Report 7000534-X (Version None)
Quarter: 2010Q3

REPORT INFORMATION
  Report Type: 
  Country: None (occurrence: None)
  Receive Date: 20100920
  Receipt Date: 20070518
  Transmission Date: 20110219
  Serious: No
  Sender: FDA-Public Use
  Company Number: US-ASTRAZENECA-2006UW26089

PATIENT
  Age: 36 Year
  Sex: Female
  Weight: 187.8 kg

DRUGS (16)
  1. SEROQUEL [Suspect]
     Indication: SCHIZOPHRENIA
     Route: 048
     Dates: start: 19980101
  2. SEROQUEL [Suspect]
     Indication: ANXIETY
     Route: 048
     Dates: start: 19980101
  3. SEROQUEL [Suspect]
     Indication: SLEEP DISORDER
     Route: 048
     Dates: start: 19980101
  4. SEROQUEL [Suspect]
     Dosage: STRENGTH- 25MG, 50MG, 200 MG, 600 MG  DOSE-  25MG-600 MG
     Route: 048
     Dates: start: 20011128
  5. SEROQUEL [Suspect]
     Dosage: STRENGTH- 25MG, 50MG, 200 MG, 600 MG  DOSE-  25MG-600 MG
     Route: 048
     Dates: start: 20011128
  6. SEROQUEL [Suspect]
     Dosage: STRENGTH- 25MG, 50MG, 200 MG, 600 MG  DOSE-  25MG-600 MG
     Route: 048
     Dates: start: 20011128
  7. ZYPREXA [Suspect]
     Route: 048
     Dates: start: 20020212
  8. HALDOL [Concomitant]
  9. NAVANE [Concomitant]
  10. PAXIL [Concomitant]
  11. WELLBUTRIN XL [Concomitant]
     Dates: start: 20060524
  12. HYDROXYZINE [Concomitant]
     Indication: ANXIETY
     Dosage: 50 MG - 100 MG DAILY
     Dates: start: 20060601
  13. LEVOTHROID [Concomitant]
     Indication: THYROID DISORDER
     Dates: start: 20060601
  14. PROLIXIN DECANOATE [Concomitant]
     Route: 030
     Dates: start: 19970528
  15. AVELOX [Concomitant]
     Route: 048
     Dates: start: 20020318
  16. PANNAZ [Concomitant]
     Indication: NASAL CONGESTION
     Dosage: STRENGTH- 90/8/2.5, TAKE 1 TABLET EVERY 12 HOURS 1/2 TO 1-FULL TABLET BY MOUTH EVERY 12 HOURS
     Route: 048
     Dates: start: 20020314

REACTIONS (4)
  - ARTHRITIS [None]
  - DIABETES MELLITUS [None]
  - HYPERGLYCAEMIA [None]
  - OBESITY [None]
